FAERS Safety Report 4445501-5 (Version None)
Quarter: 2004Q3

REPORT INFORMATION
  Report Type: 
  Country: None (occurrence: None)
  Receive Date: 20040810
  Receipt Date: 20040420
  Transmission Date: 20050211
  Serious: No
  Sender: FDA-Public Use
  Company Number: APP200400404

PATIENT

DRUGS (1)
  1. AMIODARONE HYDROCHLORIDE [Suspect]
     Dosage: INTRAVENOUS
     Route: 042
     Dates: start: 20040419, end: 20040419

REACTIONS (1)
  - EXTRAVASATION [None]
